FAERS Safety Report 9257092 (Version 1)
Quarter: 2013Q1

REPORT INFORMATION
  Report Type: Spontaneous
  Country: US (occurrence: None)
  Receive Date: 20121211
  Receipt Date: 20121211
  Transmission Date: 20140127
  Serious: Yes (Hospitalization)
  Sender: FDA-Public Use
  Company Number: FK201201862

PATIENT
  Age: 74 Year
  Sex: Female
  Weight: 72.6 kg

DRUGS (3)
  1. CARBOPLATIN [Suspect]
     Indication: OVARIAN CANCER
     Dosage: 450 MG, INTRAVENOUS (NOT OTHERWISE SPECIFIED)
     Route: 042
     Dates: start: 20100127
  2. TAXOL (PACLITAXEL) [Suspect]
     Dosage: 230 MG, INTRAVENOUS (NOT OTHERWISE SPECIFIED)
     Route: 042
     Dates: start: 20100127
  3. FARLETUZUMAB [Suspect]
     Indication: OVARIAN CANCER
     Dosage: 111.25 MG, INTRAVENOUS (NOT OTHERWISE SPECIFIED)
     Route: 042
     Dates: start: 20100127

REACTIONS (2)
  - Neutropenia [None]
  - Dehydration [None]
